FAERS Safety Report 15499148 (Version 2)
Quarter: 2021Q2

REPORT INFORMATION
  Report Type: Spontaneous
  Country: ES (occurrence: ES)
  Receive Date: 20181015
  Receipt Date: 20210524
  Transmission Date: 20210716
  Serious: Yes (Hospitalization, Other)
  Sender: FDA-Public Use
  Company Number: ES-PFIZER INC-2018415051

PATIENT
  Age: 43 Year
  Sex: Female

DRUGS (6)
  1. CHONDROITIN SULFATE [Concomitant]
     Active Substance: CHONDROITIN SULFATE (BOVINE)
     Indication: MENISCUS INJURY
     Dosage: 400 MG, 1X/DAY (400 MG QD; 400 MG DAILY)
     Route: 065
  2. DIPYRONE [Concomitant]
     Active Substance: DIPYRONE
     Indication: MENISCUS INJURY
     Dosage: 1725 MG, 1X/DAY (1725  MG, QD; 1725 MG, DAILY)
     Route: 065
  3. CELECOXIB. [Suspect]
     Active Substance: CELECOXIB
     Indication: PAIN IN EXTREMITY
     Dosage: 200 MG, DAILY
     Route: 048
     Dates: start: 20180501, end: 2018
  4. CHONDROITIN SULFATE [Concomitant]
     Active Substance: CHONDROITIN SULFATE (BOVINE)
     Indication: MENISCUS INJURY
  5. CELECOXIB. [Suspect]
     Active Substance: CELECOXIB
     Indication: MENISCUS INJURY
  6. DIPYRONE [Concomitant]
     Active Substance: DIPYRONE
     Indication: MENISCUS INJURY

REACTIONS (1)
  - Bipolar disorder [Recovering/Resolving]

NARRATIVE: CASE EVENT DATE: 20180703
